FAERS Safety Report 9269849 (Version 2)
Quarter: 2013Q2

REPORT INFORMATION
  Report Type: Spontaneous
  Country: DE (occurrence: DE)
  Receive Date: 20130503
  Receipt Date: 20130530
  Transmission Date: 20140414
  Serious: Yes (Other)
  Sender: FDA-Public Use
  Company Number: DE-JNJFOC-20130413805

PATIENT
  Age: 43 Year
  Sex: Female
  Weight: 83 kg

DRUGS (7)
  1. REMICADE [Suspect]
     Indication: CROHN^S DISEASE
     Route: 042
     Dates: start: 201207
  2. ESOMEPRAZOLE [Concomitant]
     Dosage: TOTAL DOSE 80 MG
     Route: 065
  3. BISOPROLOL [Concomitant]
     Route: 065
  4. XUSAL [Concomitant]
     Route: 065
  5. IDEOS [Concomitant]
     Route: 065
  6. NOVALGIN [Concomitant]
     Dosage: 40 DROPS
     Route: 065
  7. TEMGESIC [Concomitant]
     Route: 065

REACTIONS (6)
  - Fall [Recovered/Resolved with Sequelae]
  - Upper limb fracture [Recovered/Resolved with Sequelae]
  - Joint warmth [Not Recovered/Not Resolved]
  - Myalgia [Recovered/Resolved with Sequelae]
  - Muscle disorder [Recovered/Resolved with Sequelae]
  - Joint swelling [Not Recovered/Not Resolved]
